FAERS Safety Report 7493135-0 (Version None)
Quarter: 2011Q2

REPORT INFORMATION
  Report Type: 
  Country: None (occurrence: None)
  Receive Date: 20110519
  Receipt Date: 20110519
  Transmission Date: 20111010
  Serious: Yes (Disabling, Other)
  Sender: FDA-Public Use
  Company Number: None

PATIENT
  Age: 67 Year
  Sex: Male
  Weight: 72.5755 kg

DRUGS (5)
  1. AVANDARYL [Suspect]
     Indication: TYPE 2 DIABETES MELLITUS
     Dosage: 4 MG-1 MG 2 A DAY PO
     Route: 048
     Dates: start: 20090801, end: 20110518
  2. AVANDARYL [Suspect]
     Indication: TYPE 2 DIABETES MELLITUS
     Dosage: 4 MG-1 MG 2 A DAY PO
     Route: 048
     Dates: start: 20060801, end: 20090801
  3. ZOCOR [Concomitant]
  4. LISINOPRIL [Concomitant]
  5. PLAVIX [Concomitant]

REACTIONS (5)
  - FATIGUE [None]
  - DYSPNOEA [None]
  - BLOOD TEST ABNORMAL [None]
  - RENAL DISORDER [None]
  - MEMORY IMPAIRMENT [None]
